FAERS Safety Report 8997717 (Version 1)
Quarter: 2013Q1

REPORT INFORMATION
  Report Type: Spontaneous
  Country: CZ (occurrence: CZ)
  Receive Date: 20130104
  Receipt Date: 20130104
  Transmission Date: 20140127
  Serious: Yes (Life-Threatening, Hospitalization)
  Sender: FDA-Public Use
  Company Number: CZ-AMGEN-CZESP2012083662

PATIENT
  Age: 50 Year
  Sex: Female

DRUGS (36)
  1. PEGFILGRASTIM [Suspect]
     Indication: PRODUCT USED FOR UNKNOWN INDICATION
     Dosage: 6 MG, UNK
     Route: 058
     Dates: start: 20110608, end: 20110608
  2. FILGRASTIM [Suspect]
     Dosage: 30 MILLION IU, QD
     Dates: start: 20111026, end: 20111115
  3. RITUXIMAB [Suspect]
     Indication: DIFFUSE LARGE B-CELL LYMPHOMA
     Dosage: 600 MG, UNK
     Route: 042
     Dates: start: 20110606, end: 20110607
  4. VINCRISTINE [Suspect]
     Indication: DIFFUSE LARGE B-CELL LYMPHOMA
     Dosage: 2 MG, UNK
     Route: 042
     Dates: start: 20110607, end: 20110607
  5. CYCLOPHOSPHAMIDE [Suspect]
     Indication: DIFFUSE LARGE B-CELL LYMPHOMA
     Dosage: 5100 MG, UNK
     Route: 042
     Dates: start: 20110607, end: 20110607
  6. DOXORUBICIN [Suspect]
     Indication: DIFFUSE LARGE B-CELL LYMPHOMA
     Dosage: 127 MG, UNK
     Route: 042
     Dates: start: 20110607, end: 20110607
  7. PREDNISONE [Suspect]
     Indication: DIFFUSE LARGE B-CELL LYMPHOMA
     Dosage: 100 MG, UNK
     Route: 048
     Dates: start: 20110607, end: 20110611
  8. METHOTREXATE [Suspect]
     Indication: DIFFUSE LARGE B-CELL LYMPHOMA
     Dosage: 12 MG, UNK
     Route: 037
     Dates: start: 20110607, end: 20110607
  9. CARMUSTINE [Suspect]
     Indication: DIFFUSE LARGE B-CELL LYMPHOMA
     Dosage: 450 MG, UNK
     Route: 042
     Dates: start: 20111013, end: 20111013
  10. ETOPOSIDE [Suspect]
     Indication: DIFFUSE LARGE B-CELL LYMPHOMA
     Dosage: 300 MG, UNK
     Route: 042
     Dates: start: 20111014, end: 20111017
  11. CYTARABINE [Suspect]
     Indication: DIFFUSE LARGE B-CELL LYMPHOMA
     Dosage: 600 MG, UNK
     Route: 042
     Dates: start: 20111014, end: 20111017
  12. MELPHALAN [Suspect]
     Indication: DIFFUSE LARGE B-CELL LYMPHOMA
     Dosage: 210 MG, UNK
     Route: 042
     Dates: start: 20111018, end: 20111018
  13. COTRIMOXAZOLE [Suspect]
     Indication: PRODUCT USED FOR UNKNOWN INDICATION
     Dosage: 960 MG, UNK
     Route: 048
     Dates: start: 20110516
  14. COTRIMOXAZOLE [Suspect]
     Dosage: 480 MG, UNK
     Route: 048
     Dates: start: 20111012, end: 20111028
  15. ACYCLOVIR                          /00587301/ [Suspect]
     Indication: PRODUCT USED FOR UNKNOWN INDICATION
     Dosage: 800 MG, UNK
     Route: 048
     Dates: start: 20110516
  16. ACYCLOVIR                          /00587301/ [Suspect]
     Dosage: 800 MG, UNK
     Route: 048
     Dates: start: 20111012, end: 20111028
  17. ACYCLOVIR                          /00587301/ [Suspect]
     Dosage: 750 MG, UNK
     Route: 042
     Dates: start: 20111029
  18. FLUCONAZOLE [Suspect]
     Indication: PRODUCT USED FOR UNKNOWN INDICATION
     Dosage: 200 MG, UNK
     Route: 042
     Dates: start: 20110616, end: 20110621
  19. FLUCONAZOLE [Suspect]
     Dosage: 100 MG, UNK
     Route: 048
     Dates: start: 20111012, end: 20111028
  20. FLUCONAZOLE [Suspect]
     Dosage: 200 MG, UNK
     Route: 042
     Dates: start: 20111029, end: 20111104
  21. VORICONAZOLE [Suspect]
     Indication: PRODUCT USED FOR UNKNOWN INDICATION
     Dosage: 400 MG, UNK
     Route: 042
     Dates: start: 20111104
  22. VANCOMYCINE [Suspect]
     Indication: PRODUCT USED FOR UNKNOWN INDICATION
     Dosage: 1500 MG, UNK
     Route: 042
     Dates: start: 20111029, end: 20111109
  23. LINEZOLID [Suspect]
     Indication: PRODUCT USED FOR UNKNOWN INDICATION
     Dosage: 1200 MG, UNK
     Route: 042
     Dates: start: 20111109
  24. PIPERACILLINE/TAZOBACTAM [Suspect]
     Indication: PRODUCT USED FOR UNKNOWN INDICATION
     Dosage: 13.5 MG, UNK
     Route: 042
     Dates: start: 20111026, end: 20111030
  25. PIPERACILLINE/TAZOBACTAM [Suspect]
     Dosage: 4.5 G, TID
  26. MEROPENEM [Suspect]
     Indication: PRODUCT USED FOR UNKNOWN INDICATION
     Dosage: 6 G, UNK
     Route: 042
     Dates: start: 20111029
  27. OMEPRAZOL                          /00661201/ [Suspect]
     Indication: PRODUCT USED FOR UNKNOWN INDICATION
     Dosage: 20 MG, UNK
     Route: 048
     Dates: start: 20111012, end: 20111028
  28. OMEPRAZOL                          /00661201/ [Suspect]
     Dosage: 80 MG, UNK
     Route: 042
     Dates: start: 20111029
  29. KABIVEN [Suspect]
     Indication: PRODUCT USED FOR UNKNOWN INDICATION
     Dosage: UNK
     Route: 042
     Dates: start: 20111029
  30. UROMITEXAN [Concomitant]
     Dosage: 4000 MG, UNK
     Dates: start: 20110607, end: 20110607
  31. BISULEPIN HYDROCHLORIDE [Concomitant]
     Dosage: 1 MG, UNK
     Route: 042
     Dates: start: 20110606, end: 20110607
  32. HYDROCORTISONE [Concomitant]
     Dosage: 200 MG, UNK
     Route: 042
     Dates: start: 20110606, end: 20110607
  33. PARACETAMOL [Concomitant]
     Dosage: 1000 MG, UNK
     Route: 048
     Dates: start: 20110606, end: 20110607
  34. RANITIDINE HYDROCHLORIDE [Concomitant]
     Dosage: 300 MG, UNK
     Route: 048
     Dates: start: 20110516
  35. CALCIUM CHLORIDE [Concomitant]
     Dosage: 2 MG, UNK
     Route: 048
     Dates: start: 20110607, end: 20110611
  36. GRANISETRON [Concomitant]
     Dosage: UNK
     Route: 042
     Dates: start: 20110607, end: 20110607

REACTIONS (4)
  - Neutrophil count decreased [Recovered/Resolved]
  - Febrile neutropenia [Recovered/Resolved]
  - Pneumonia [Recovered/Resolved]
  - Mucosal inflammation [Not Recovered/Not Resolved]
